FAERS Safety Report 16868691 (Version 1)
Quarter: 2019Q3

REPORT INFORMATION
  Report Type: Spontaneous
  Country: FR (occurrence: FR)
  Receive Date: 20190930
  Receipt Date: 20190930
  Transmission Date: 20191005
  Serious: Yes (Hospitalization)
  Sender: FDA-Public Use
  Company Number: FR-MYLANLABS-2019M1090157

PATIENT
  Age: 18 Year
  Sex: Female

DRUGS (4)
  1. VENLAFAXINE [Suspect]
     Active Substance: VENLAFAXINE HYDROCHLORIDE
     Indication: PRODUCT USED FOR UNKNOWN INDICATION
     Dosage: 262.5 MILLIGRAM, TOTAL
     Route: 048
     Dates: start: 20180601, end: 20180601
  2. MELATONINE [Suspect]
     Active Substance: MELATONIN
     Dosage: 3 MILLIGRAM, TOTAL
     Route: 048
     Dates: start: 20180601, end: 20180601
  3. MELATONINE [Suspect]
     Active Substance: MELATONIN
     Indication: PRODUCT USED FOR UNKNOWN INDICATION
     Dosage: 262.5 MILLIGRAM, TOTAL
     Route: 048
     Dates: start: 20180601, end: 20180601
  4. LORMETAZEPAM [Suspect]
     Active Substance: LORMETAZEPAM
     Indication: PRODUCT USED FOR UNKNOWN INDICATION
     Dosage: 4 MILLIGRAM, TOTAL
     Route: 048
     Dates: start: 20180601, end: 20180601

REACTIONS (2)
  - Toxicity to various agents [Recovered/Resolved]
  - Somnolence [Recovered/Resolved]

NARRATIVE: CASE EVENT DATE: 20180601
